FAERS Safety Report 10178532 (Version 1)
Quarter: 2014Q2

REPORT INFORMATION
  Report Type: Spontaneous
  Country: CN (occurrence: CN)
  Receive Date: 20140519
  Receipt Date: 20140519
  Transmission Date: 20141212
  Serious: Yes (Hospitalization)
  Sender: FDA-Public Use
  Company Number: CN-JNJFOC-20140504926

PATIENT
  Sex: 0

DRUGS (3)
  1. PALIPERIDONE [Suspect]
     Indication: SCHIZOPHRENIA
     Route: 048
  2. PALIPERIDONE [Suspect]
     Indication: SCHIZOPHRENIA
     Route: 048
  3. PALIPERIDONE [Suspect]
     Indication: SCHIZOPHRENIA
     Route: 048

REACTIONS (13)
  - Schizophrenia [Unknown]
  - Upper respiratory tract infection [Unknown]
  - Menstrual disorder [Unknown]
  - Intentional overdose [Unknown]
  - Amenorrhoea [Unknown]
  - Extrapyramidal disorder [Unknown]
  - Blood prolactin increased [Unknown]
  - Constipation [Unknown]
  - Hepatic function abnormal [Unknown]
  - Sleep disorder [Unknown]
  - Somnolence [Unknown]
  - Fatigue [Unknown]
  - Nausea [Unknown]
